FAERS Safety Report 8469559-1 (Version None)
Quarter: 2012Q2

REPORT INFORMATION
  Report Type: 
  Country: None (occurrence: None)
  Receive Date: 20120626
  Receipt Date: 20120621
  Transmission Date: 20120825
  Serious: No
  Sender: FDA-Public Use
  Company Number: US-TEVA-344840USA

PATIENT
  Sex: Female
  Weight: 37.682 kg

DRUGS (1)
  1. PLAN B ONE-STEP [Suspect]
     Indication: POST COITAL CONTRACEPTION
     Dosage: 1.5 MILLIGRAM;
     Route: 048
     Dates: start: 20120616, end: 20120616

REACTIONS (4)
  - ABDOMINAL DISTENSION [None]
  - MUSCLE SPASMS [None]
  - FATIGUE [None]
  - IRRITABILITY [None]
